FAERS Safety Report 8757620 (Version 3)
Quarter: 2012Q4

REPORT INFORMATION
  Report Type: 
  Country: JP (occurrence: JP)
  Receive Date: 20120828
  Receipt Date: 20120831
  Transmission Date: 20130627
  Serious: Yes (Life-Threatening, Hospitalization)
  Sender: FDA-Public Use
  Company Number: PHHY2012JP068599

PATIENT
  Age: 63 Year
  Sex: Male

DRUGS (2)
  1. CICLOSPORIN [Suspect]
     Indication: GLOMERULONEPHRITIS MEMBRANOUS
     Dosage: 100 mg, daily
  2. PREDNISOLONE [Suspect]
     Indication: GLOMERULONEPHRITIS MEMBRANOUS
     Dosage: 35 mg, per day
     Route: 048

REACTIONS (10)
  - Prerenal failure [Not Recovered/Not Resolved]
  - Glomerulonephritis membranous [Unknown]
  - Herpes zoster [Recovered/Resolved]
  - Laryngeal oedema [Recovered/Resolved]
  - Respiratory tract congestion [Unknown]
  - Epiglottic oedema [Unknown]
  - Laryngeal cyst [Recovering/Resolving]
  - Renal impairment [Unknown]
  - Blister [Unknown]
  - Pain [Unknown]
